FAERS Safety Report 9586500 (Version 2)
Quarter: 2014Q1

REPORT INFORMATION
  Report Type: Spontaneous
  Country: US (occurrence: None)
  Receive Date: 20131001
  Receipt Date: 20140210
  Transmission Date: 20141002
  Serious: Yes (Death, Other)
  Sender: FDA-Public Use
  Company Number: US-JNJFOC-20130915684

PATIENT
  Sex: Male

DRUGS (2)
  1. DACOGEN [Suspect]
     Indication: MYELODYSPLASTIC SYNDROME
     Route: 042
     Dates: start: 201309
  2. BLOOD PRESSURE MEDICATION NOS (ANTIHYPERTENSIVES) [Concomitant]

REACTIONS (3)
  - Local swelling [None]
  - Localised oedema [None]
  - Scrotal swelling [None]
